FAERS Safety Report 26055108 (Version 1)
Quarter: 2025Q4

REPORT INFORMATION
  Report Type: Report from Study
  Country: US (occurrence: US)
  Receive Date: 20251117
  Receipt Date: 20251117
  Transmission Date: 20260118
  Serious: No
  Sender: MALLINCKRODT
  Company Number: US-MALLINCKRODT-MNK202506804

PATIENT
  Age: 73 Year
  Sex: Female

DRUGS (1)
  1. CORTICOTROPIN [Suspect]
     Active Substance: CORTICOTROPIN
     Indication: Punctate keratitis
     Dosage: 80 UNITS
     Route: 058
     Dates: start: 20250913

REACTIONS (5)
  - Asthma [Not Recovered/Not Resolved]
  - Eye pruritus [Not Recovered/Not Resolved]
  - Nasopharyngitis [Recovering/Resolving]
  - Viral infection [Recovering/Resolving]
  - Product dose omission issue [Unknown]

NARRATIVE: CASE EVENT DATE: 20251001
